FAERS Safety Report 7299750-1 (Version None)
Quarter: 2011Q1

REPORT INFORMATION
  Report Type: 
  Country: None (occurrence: None)
  Receive Date: 20110217
  Receipt Date: 20110214
  Transmission Date: 20110831
  Serious: Yes (Other)
  Sender: FDA-Public Use
  Company Number: CO-PFIZER INC-2010056752

PATIENT
  Age: 47 Year
  Sex: Female

DRUGS (3)
  1. DOSTINEX [Suspect]
     Indication: ADENOMA BENIGN
     Dosage: 0.5 MG, WEEKLY
     Route: 048
     Dates: start: 20050101
  2. DOSTINEX [Suspect]
     Indication: BLOOD PROLACTIN INCREASED
     Dosage: 0.5 MG, MONTHLY
     Route: 048
  3. DOSTINEX [Suspect]
     Dosage: 0.5 MG EVERY 2 WEEKS
     Route: 048
     Dates: start: 20050101

REACTIONS (3)
  - LOSS OF CONSCIOUSNESS [None]
  - SCLERITIS [None]
  - VISUAL ACUITY REDUCED [None]
